FAERS Safety Report 5201872-3 (Version None)
Quarter: 2006Q4

REPORT INFORMATION
  Report Type: 
  Country: None (occurrence: None)
  Receive Date: 20061010
  Receipt Date: 20060620
  Transmission Date: 20070319
  Serious: Yes (Other)
  Sender: FDA-Public Use
  Company Number: 2006-06-1663

PATIENT
  Age: 11 Year
  Sex: Male

DRUGS (3)
  1. TEMODAR [Suspect]
     Indication: BRAIN NEOPLASM
     Dosage: 250MGQDX5DAYS ORAL
     Route: 048
  2. CATS CLAW (UNCARIA TOMENTOSA/GUIANENSIS) CAPSULES [Concomitant]
  3. ISCADOR [Concomitant]

REACTIONS (3)
  - IMMUNOSUPPRESSION [None]
  - PLATELET COUNT DECREASED [None]
  - WHITE BLOOD CELL COUNT DECREASED [None]
